FAERS Safety Report 5675285-4 (Version None)
Quarter: 2008Q2

REPORT INFORMATION
  Report Type: 
  Country: None (occurrence: None)
  Receive Date: 20080307
  Receipt Date: 20071214
  Transmission Date: 20081010
  Serious: Yes (Hospitalization)
  Sender: FDA-Public Use
  Company Number: US200712003362

PATIENT
  Sex: Male

DRUGS (9)
  1. GEMZAR [Suspect]
     Indication: NON-SMALL CELL LUNG CANCER
     Dates: start: 20071121
  2. TARCEVA [Concomitant]
  3. INSPRA [Concomitant]
  4. COREG [Concomitant]
  5. DIABETA [Concomitant]
  6. DOXYCILIN (DOXYCYCLINE HYDROCHLORIDE) [Concomitant]
  7. LEVAQUIN [Concomitant]
  8. PREDNISONE TAB [Concomitant]
  9. ZOCOR [Concomitant]

REACTIONS (3)
  - DYSPNOEA [None]
  - PLATELET COUNT DECREASED [None]
  - WHITE BLOOD CELL COUNT DECREASED [None]
